FAERS Safety Report 8618101-0 (Version None)
Quarter: 2012Q3

REPORT INFORMATION
  Report Type: 
  Country: None (occurrence: None)
  Receive Date: 20120824
  Receipt Date: 20120424
  Transmission Date: 20120928
  Serious: No
  Sender: FDA-Public Use
  Company Number: US-ASTRAZENECA-2012SE26593

PATIENT
  Age: 80 Year
  Sex: Male

DRUGS (2)
  1. SYMBICORT [Suspect]
     Indication: CHRONIC OBSTRUCTIVE PULMONARY DISEASE
     Dosage: 160/4.5, FREQUENCY UNKNOWN
     Route: 055
  2. SYMBICORT [Suspect]
     Dosage: 80/4.5, FREQUENCY UNKNOWN
     Route: 055

REACTIONS (1)
  - MALAISE [None]
